FAERS Safety Report 6877354-X (Version None)
Quarter: 2010Q3

REPORT INFORMATION
  Report Type: 
  Country: None (occurrence: None)
  Receive Date: 20100727
  Receipt Date: 20090930
  Transmission Date: 20110219
  Serious: No
  Sender: FDA-Public Use
  Company Number: US-ABBOTT-09P-163-0600544-00

PATIENT
  Sex: Female
  Weight: 53.118 kg

DRUGS (7)
  1. SYNTHROID [Suspect]
     Indication: THYROIDECTOMY
     Dates: start: 19980101
  2. SYNTHROID [Suspect]
  3. TICLOPIDINE HCL [Concomitant]
     Indication: CEREBROVASCULAR ACCIDENT
  4. AVAPRO [Concomitant]
     Indication: HYPERTENSION
  5. OMEPRAZOLE [Concomitant]
     Indication: GASTROOESOPHAGEAL REFLUX DISEASE
  6. ASPIRIN [Concomitant]
     Indication: CEREBROVASCULAR ACCIDENT
  7. DOCUSATE SODIUM [Concomitant]
     Indication: CONSTIPATION PROPHYLAXIS

REACTIONS (1)
  - POLLAKIURIA [None]
